FAERS Safety Report 13281807 (Version 2)
Quarter: 2017Q1

REPORT INFORMATION
  Report Type: Report from Study
  Country: ZA (occurrence: ZA)
  Receive Date: 20170301
  Receipt Date: 20170310
  Transmission Date: 20170428
  Serious: Yes (Hospitalization)
  Sender: FDA-Public Use
  Company Number: PHHY2017ZA030273

PATIENT
  Sex: Female

DRUGS (3)
  1. GALVUS [Concomitant]
     Active Substance: VILDAGLIPTIN
     Indication: DIABETES MELLITUS
     Dosage: 50 MG, UNK
     Route: 048
     Dates: start: 20160730
  2. AMITRIPTYLINE SANDOZ [Suspect]
     Active Substance: AMITRIPTYLINE
     Indication: DEPRESSION
     Dosage: 25 MG, UNK
     Route: 048
     Dates: start: 20161228
  3. MACRODANTIN [Suspect]
     Active Substance: NITROFURANTOIN
     Indication: BLADDER DISORDER
     Dosage: 100 MG, UNK
     Route: 048
     Dates: start: 20160730

REACTIONS (1)
  - Tuberculosis [Unknown]
